FAERS Safety Report 8278137-9 (Version None)
Quarter: 2012Q2

REPORT INFORMATION
  Report Type: 
  Country: None (occurrence: None)
  Receive Date: 20120412
  Receipt Date: 20120112
  Transmission Date: 20120825
  Serious: No
  Sender: FDA-Public Use
  Company Number: US-ASTRAZENECA-2012SE02411

PATIENT
  Age: 62 Year
  Sex: Female

DRUGS (3)
  1. BISMUTH SUBSALICYLATE [Concomitant]
  2. CALCIUM CARBONATE [Concomitant]
  3. NEXIUM [Suspect]
     Route: 048

REACTIONS (8)
  - PAIN [None]
  - HYPERHIDROSIS [None]
  - APHAGIA [None]
  - DRUG DOSE OMISSION [None]
  - DRUG INEFFECTIVE [None]
  - DYSPHAGIA [None]
  - WRONG DRUG ADMINISTERED [None]
  - DYSPEPSIA [None]
